FAERS Safety Report 7228602-8 (Version None)
Quarter: 2011Q1

REPORT INFORMATION
  Report Type: 
  Country: None (occurrence: None)
  Receive Date: 20110117
  Receipt Date: 20110111
  Transmission Date: 20110831
  Serious: No
  Sender: FDA-Public Use
  Company Number: US-BIOGENIDEC-2010BI042792

PATIENT
  Age: 39 Year
  Sex: Female

DRUGS (2)
  1. TYSABRI [Suspect]
     Indication: MULTIPLE SCLEROSIS
     Route: 042
     Dates: start: 20101117
  2. ACNE MEDICATION (NOS) [Concomitant]
     Indication: ACNE

REACTIONS (10)
  - VAGINAL HAEMORRHAGE [None]
  - RASH PAPULAR [None]
  - ABDOMINAL PAIN [None]
  - ARTHRALGIA [None]
  - THROAT TIGHTNESS [None]
  - DYSSTASIA [None]
  - SOMNOLENCE [None]
  - SPEECH DISORDER [None]
  - MUSCLE SPASMS [None]
  - ASTHENIA [None]
